FAERS Safety Report 12633807 (Version 2)
Quarter: 2016Q3

REPORT INFORMATION
  Report Type: Spontaneous
  Country: FR (occurrence: FR)
  Receive Date: 20160808
  Receipt Date: 20160906
  Transmission Date: 20161109
  Serious: Yes (Other)
  Sender: FDA-Public Use
  Company Number: FR-PFIZER INC-2016371541

PATIENT
  Age: 10 Day
  Sex: Male
  Weight: 3.7 kg

DRUGS (11)
  1. CEFOTAXIME [Concomitant]
     Active Substance: CEFOTAXIME SODIUM
     Dosage: 25 MG, 4X/DAY
     Route: 042
     Dates: start: 201607
  2. INEXIUM [Concomitant]
     Active Substance: ESOMEPRAZOLE
     Dosage: 25 MG, 4X/DAY
     Route: 048
     Dates: start: 201607
  3. LASILIX [Concomitant]
     Active Substance: FUROSEMIDE
     Dosage: 3.7 MG, EVERY 12 HOURS
     Route: 042
     Dates: start: 201607
  4. MORPHINE RENAUDIN [Concomitant]
     Active Substance: MORPHINE
     Indication: SEDATION
     Dosage: UNK
     Route: 042
     Dates: start: 201607, end: 20160715
  5. KETAMINE RENAUDIN [Concomitant]
     Active Substance: KETAMINE
     Indication: SEDATION
     Dosage: UNK
     Route: 042
     Dates: start: 201607, end: 20160715
  6. REVATIO [Suspect]
     Active Substance: SILDENAFIL CITRATE
     Dosage: 3.5 MG, EVERY 8 HOURS
     Dates: start: 20160718
  7. VANCOMYCINE MYLAN /00314401/ [Concomitant]
     Active Substance: VANCOMYCIN
     Dosage: UNK
     Route: 041
     Dates: start: 201607
  8. REVATIO [Suspect]
     Active Substance: SILDENAFIL CITRATE
     Indication: PULMONARY ARTERIAL HYPERTENSION
     Dosage: 35 MG, DAILY
     Route: 048
     Dates: start: 20160715, end: 20160716
  9. KINOX [Concomitant]
     Indication: PULMONARY ARTERIAL HYPERTENSION
     Dosage: UNK
     Route: 055
     Dates: start: 201607
  10. CELESTENE [Concomitant]
     Active Substance: BETAMETHASONE
     Dosage: 0.8 MG, 1X/DAY
     Dates: start: 20160713, end: 20160715
  11. PULMICORT TURBUHALER [Concomitant]
     Active Substance: BUDESONIDE
     Dosage: UNK
     Dates: start: 201507

REACTIONS (2)
  - Generalised tonic-clonic seizure [Recovered/Resolved]
  - Accidental overdose [Recovered/Resolved]

NARRATIVE: CASE EVENT DATE: 20160715
